FAERS Safety Report 16933948 (Version 2)
Quarter: 2019Q4

REPORT INFORMATION
  Report Type: Spontaneous
  Country: US (occurrence: US)
  Receive Date: 20191018
  Receipt Date: 20191030
  Transmission Date: 20200122
  Serious: Yes (Other)
  Sender: FDA-Public Use
  Company Number: US-ALVOGEN-2019-ALVOGEN-101685

PATIENT
  Age: 43 Year
  Sex: Female

DRUGS (2)
  1. ASCORBIC ACID/CALCIUM PANTOTHENATE/CYANOCOBALAMIN/ERGOCALCIFEROL/NICOTINAMIDE/PYRIDOXINE HYDROCHLORI [Concomitant]
     Indication: VITAMIN SUPPLEMENTATION
  2. MACROBID [Suspect]
     Active Substance: NITROFURANTOIN\NITROFURANTOIN MONOHYDRATE
     Indication: URINARY TRACT INFECTION
     Dosage: 100 MG BID
     Dates: start: 20111218

REACTIONS (2)
  - Exposure during pregnancy [Unknown]
  - Stillbirth [Unknown]

NARRATIVE: CASE EVENT DATE: 20111218
